FAERS Safety Report 4704023-4 (Version None)
Quarter: 2005Q2

REPORT INFORMATION
  Report Type: 
  Country: None (occurrence: None)
  Receive Date: 20050629
  Receipt Date: 20050614
  Transmission Date: 20051028
  Serious: No
  Sender: FDA-Public Use
  Company Number: 11605

PATIENT
  Age: 46 Year
  Sex: Male

DRUGS (3)
  1. CISPLATIN [Suspect]
     Indication: LUNG NEOPLASM MALIGNANT
     Dosage: 600 MG/M2 TOTAL
  2. MITOMYCIN [Suspect]
     Indication: LUNG NEOPLASM MALIGNANT
     Dosage: 80 MG/M2 TOTAL;
  3. VINDESINE [Suspect]
     Indication: LUNG NEOPLASM MALIGNANT
     Dosage: 25 MG/M2 TOTAL;

REACTIONS (1)
  - ACUTE PROMYELOCYTIC LEUKAEMIA [None]
